FAERS Safety Report 5527953-2 (Version None)
Quarter: 2007Q4

REPORT INFORMATION
  Report Type: 
  Country: None (occurrence: None)
  Receive Date: 20071123
  Receipt Date: 20071109
  Transmission Date: 20080405
  Serious: Yes (Hospitalization)
  Sender: FDA-Public Use
  Company Number: 8027980

PATIENT
  Age: 63 Year
  Sex: Male
  Weight: 109.5 kg

DRUGS (5)
  1. LORTAB [Suspect]
     Indication: PAIN
  2. MORPHINE SULFATE [Suspect]
     Indication: PAIN
  3. HUMIRA [Suspect]
     Indication: RHEUMATOID ARTHRITIS
     Dosage: 40 MG SC
     Route: 058
  4. HUMIRA [Suspect]
     Indication: RHEUMATOID ARTHRITIS
     Dosage: 40 MG SC
     Route: 058
     Dates: start: 20070918
  5. METHOTREXATE [Concomitant]

REACTIONS (4)
  - FAECALOMA [None]
  - ILEUS [None]
  - INJECTION SITE PAIN [None]
  - SMALL INTESTINAL OBSTRUCTION [None]
